FAERS Safety Report 15836438 (Version 1)
Quarter: 2019Q1

REPORT INFORMATION
  Report Type: Spontaneous
  Country: IL (occurrence: IL)
  Receive Date: 20190117
  Receipt Date: 20190117
  Transmission Date: 20190417
  Serious: Yes (Other)
  Sender: FDA-Public Use
  Company Number: IL-IPCA LABORATORIES LIMITED-IPC-2019-IL-000052

PATIENT

DRUGS (1)
  1. PROPRANOLOL [Suspect]
     Active Substance: PROPRANOLOL HYDROCHLORIDE
     Indication: PYOGENIC GRANULOMA
     Dosage: 4 %, BID
     Route: 061

REACTIONS (1)
  - Haemorrhage [Unknown]
